FAERS Safety Report 9611561 (Version 3)
Quarter: 2013Q4

REPORT INFORMATION
  Report Type: Spontaneous
  Country: IT (occurrence: IT)
  Receive Date: 20131010
  Receipt Date: 20131016
  Transmission Date: 20140711
  Serious: Yes (Other)
  Sender: FDA-Public Use
  Company Number: PHHY2013IT112618

PATIENT
  Age: 75 Year
  Sex: Female

DRUGS (7)
  1. ZOMETA [Suspect]
     Indication: METASTASES TO BONE
     Dosage: 4 MG, CYCLIC
     Route: 042
     Dates: start: 20100501, end: 20130911
  2. ALENDRONATE SODIUM [Suspect]
     Dosage: UNK UKN, UNK
  3. PREDNISONE [Concomitant]
     Dosage: UNK UKN, UNK
  4. VELCADE [Concomitant]
     Dosage: UNK UKN, UNK
  5. REVLIMID [Concomitant]
     Dosage: UNK UKN, UNK
     Route: 048
  6. SOLDESAM [Concomitant]
     Dosage: UNK UKN, UNK
  7. ALKERAN [Concomitant]
     Dosage: UNK UKN, UNK

REACTIONS (2)
  - Osteonecrosis of jaw [Not Recovered/Not Resolved]
  - Exposed bone in jaw [Unknown]
